FAERS Safety Report 22290007 (Version 1)
Quarter: 2023Q2

REPORT INFORMATION
  Report Type: Spontaneous
  Country: US (occurrence: None)
  Receive Date: 20230504
  Receipt Date: 20230504
  Transmission Date: 20230722
  Serious: Yes (Hospitalization)
  Sender: FDA-Public Use
  Company Number: None

PATIENT
  Age: 58 Year
  Sex: Female
  Weight: 97.50 kg

DRUGS (1)
  1. METHOXY POLYETHYLENE GLYCOL-EPOETIN BETA [Suspect]
     Active Substance: METHOXY POLYETHYLENE GLYCOL-EPOETIN BETA
     Indication: Anaemia
     Dosage: OTHER FREQUENCY : BI-MONTHLY;?
     Route: 017
     Dates: start: 20230501, end: 20230501

REACTIONS (9)
  - Feeling hot [None]
  - Panic reaction [None]
  - Respiratory rate increased [None]
  - Hyperhidrosis [None]
  - Loss of consciousness [None]
  - Agonal respiration [None]
  - Pulse absent [None]
  - Cold sweat [None]
  - Blood pressure systolic increased [None]

NARRATIVE: CASE EVENT DATE: 20230501
